FAERS Safety Report 19439019 (Version 2)
Quarter: 2021Q3

REPORT INFORMATION
  Report Type: Report from Study
  Country: US (occurrence: US)
  Receive Date: 20210618
  Receipt Date: 20210728
  Transmission Date: 20211014
  Serious: No
  Sender: FDA-Public Use
  Company Number: NVSC2021US126506

PATIENT
  Sex: Male

DRUGS (1)
  1. ENTRESTO [Suspect]
     Active Substance: SACUBITRIL\VALSARTAN
     Indication: CARDIAC FAILURE
     Dosage: 0.5 DF, BID (24/26 MG)
     Route: 048
     Dates: start: 202004

REACTIONS (11)
  - Frustration tolerance decreased [Unknown]
  - Fatigue [Unknown]
  - Cough [Unknown]
  - Joint swelling [Unknown]
  - Muscular weakness [Unknown]
  - Insomnia [Unknown]
  - Memory impairment [Unknown]
  - Visual impairment [Unknown]
  - Blood pressure decreased [Unknown]
  - Neuralgia [Unknown]
  - Sinus disorder [Unknown]
